FAERS Safety Report 13340882 (Version 1)
Quarter: 2017Q1

REPORT INFORMATION
  Report Type: Spontaneous
  Country: US (occurrence: US)
  Receive Date: 20170315
  Receipt Date: 20170315
  Transmission Date: 20170428
  Serious: No
  Sender: FDA-Public Use
  Company Number: None

PATIENT
  Age: 73 Year
  Sex: Female
  Weight: 46.76 kg

DRUGS (5)
  1. METOPROLOL SUCCINATE ER [Suspect]
     Active Substance: METOPROLOL SUCCINATE
     Indication: TACHYCARDIA
     Dosage: ?          QUANTITY:JTI E, ?7IIRIJC 6 {LEI/Y;?
     Route: 048
     Dates: start: 20170218, end: 20170304
  2. ASA [Concomitant]
     Active Substance: ASPIRIN
  3. ZOLPIDEM [Concomitant]
     Active Substance: ZOLPIDEM\ZOLPIDEM TARTRATE
  4. XANAX [Concomitant]
     Active Substance: ALPRAZOLAM
  5. MAGNESIUM ER [Concomitant]

REACTIONS (4)
  - Product substitution issue [None]
  - Heart rate irregular [None]
  - Heart rate increased [None]
  - Product solubility abnormal [None]

NARRATIVE: CASE EVENT DATE: 20170218
